FAERS Safety Report 6412726-9 (Version None)
Quarter: 2009Q4

REPORT INFORMATION
  Report Type: 
  Country: None (occurrence: None)
  Receive Date: 20091023
  Receipt Date: 20091021
  Transmission Date: 20100525
  Serious: Yes (Life-Threatening, Hospitalization, Disabling, Other)
  Sender: FDA-Public Use
  Company Number: PHEH2009US12673

PATIENT
  Sex: Female
  Weight: 58.05 kg

DRUGS (1)
  1. RECLAST [Suspect]
     Dosage: 5 MG/100 ML, YEARLY
     Dates: start: 20090818

REACTIONS (5)
  - ABASIA [None]
  - ARTHRITIS [None]
  - CHILLS [None]
  - MUSCLE SPASMS [None]
  - QUADRIPLEGIA [None]
